FAERS Safety Report 5013140-3 (Version None)
Quarter: 2006Q2

REPORT INFORMATION
  Report Type: 
  Country: None (occurrence: None)
  Receive Date: 20060530
  Receipt Date: 20060306
  Transmission Date: 20061013
  Serious: No
  Sender: FDA-Public Use
  Company Number: US-GLAXOSMITHKLINE-A0596301A

PATIENT
  Age: 49 Year
  Sex: Female

DRUGS (3)
  1. WELLBUTRIN XL [Suspect]
     Indication: DEPRESSION
     Dosage: 300MG PER DAY
     Route: 048
     Dates: start: 20060224
  2. WELLBUTRIN SR [Suspect]
     Indication: DEPRESSION
     Dosage: 150MG TWICE PER DAY
     Route: 048
  3. BIRTH CONTROL [Concomitant]

REACTIONS (11)
  - AGITATION [None]
  - ANOREXIA [None]
  - DRY MOUTH [None]
  - FATIGUE [None]
  - HEART RATE INCREASED [None]
  - HOSTILITY [None]
  - IRRITABILITY [None]
  - POOR QUALITY DRUG ADMINISTERED [None]
  - RESTLESSNESS [None]
  - TREMOR [None]
  - WEIGHT DECREASED [None]
